FAERS Safety Report 12989525 (Version 1)
Quarter: 2016Q4

REPORT INFORMATION
  Report Type: Spontaneous
  Country: US (occurrence: US)
  Receive Date: 20161201
  Receipt Date: 20161201
  Transmission Date: 20170207
  Serious: Yes (Hospitalization)
  Sender: FDA-Public Use
  Company Number: US-CIPLA LTD.-2016US21841

PATIENT

DRUGS (4)
  1. WARFARIN [Suspect]
     Active Substance: WARFARIN
     Dosage: 12 MG, QD, EVERY NIGHT AT BEDTIME
     Route: 065
  2. BLEACH [Suspect]
     Active Substance: SODIUM HYPOCHLORITE
     Dosage: UNK, TWO TO THREE MOUT FULLS (SINGLE DOSE)
     Route: 048
  3. WARFARIN [Suspect]
     Active Substance: WARFARIN
     Dosage: 540 MG, SINGLE DOSE
     Route: 048
  4. CLONAZEPAM. [Suspect]
     Active Substance: CLONAZEPAM
     Dosage: 4 MG, FOUR 1 MG TABLETS
     Route: 048

REACTIONS (5)
  - Intentional self-injury [Unknown]
  - Suicide attempt [Unknown]
  - International normalised ratio increased [Recovered/Resolved]
  - Intentional overdose [Unknown]
  - Vomiting [Unknown]
